FAERS Safety Report 7691313-9 (Version None)
Quarter: 2011Q3

REPORT INFORMATION
  Report Type: 
  Country: None (occurrence: None)
  Receive Date: 20110818
  Receipt Date: 20110808
  Transmission Date: 20111222
  Serious: Yes (Other)
  Sender: FDA-Public Use
  Company Number: DE-ROCHE-791988

PATIENT
  Sex: Female
  Weight: 73 kg

DRUGS (2)
  1. AVASTIN [Suspect]
     Dosage: AT LEAST 6 CYLCES
     Route: 042
     Dates: start: 20100616, end: 20100930
  2. TAXOL [Concomitant]
     Dosage: 14 CYCLES
     Route: 042
     Dates: start: 20100616, end: 20100927

REACTIONS (2)
  - EPISTAXIS [None]
  - MUCOSAL INFLAMMATION [None]
